FAERS Safety Report 8163172-1 (Version None)
Quarter: 2012Q1

REPORT INFORMATION
  Report Type: 
  Country: None (occurrence: None)
  Receive Date: 20120224
  Receipt Date: 20111012
  Transmission Date: 20120608
  Serious: No
  Sender: FDA-Public Use
  Company Number: US-PFIZER INC-K201101214

PATIENT
  Sex: Female
  Weight: 63.492 kg

DRUGS (2)
  1. METHADONE [Concomitant]
     Indication: BACK PAIN
     Dosage: 20 MG, 4X/DAY
  2. FLECTOR [Suspect]
     Indication: BACK PAIN
     Dosage: 1 PATCH, EVERY 24 HOURS
     Route: 061
     Dates: start: 20110927

REACTIONS (2)
  - INAPPROPRIATE SCHEDULE OF DRUG ADMINISTRATION [None]
  - DRUG INEFFECTIVE [None]
